FAERS Safety Report 13907165 (Version 2)
Quarter: 2017Q3

REPORT INFORMATION
  Report Type: Spontaneous
  Country: JP (occurrence: JP)
  Receive Date: 20170825
  Receipt Date: 20170911
  Transmission Date: 20171127
  Serious: Yes (Other)
  Sender: FDA-Public Use
  Company Number: JP-GILEAD-2017-0288634

PATIENT
  Sex: Male

DRUGS (1)
  1. SOVALDI [Suspect]
     Active Substance: SOFOSBUVIR
     Indication: HEPATITIS C
     Dosage: UNK
     Route: 065
     Dates: start: 201506, end: 201512

REACTIONS (6)
  - Incorrect drug administration duration [Recovered/Resolved]
  - Hepatic cancer stage I [Unknown]
  - Anaemia [Unknown]
  - Drug ineffective [Unknown]
  - Lymphatic system neoplasm [Unknown]
  - Headache [Unknown]

NARRATIVE: CASE EVENT DATE: 2015
